FAERS Safety Report 8180577-3 (Version None)
Quarter: 2012Q1

REPORT INFORMATION
  Report Type: 
  Country: None (occurrence: None)
  Receive Date: 20120302
  Receipt Date: 20120228
  Transmission Date: 20120608
  Serious: Yes (Death)
  Sender: FDA-Public Use
  Company Number: CN-ROCHE-1044129

PATIENT

DRUGS (2)
  1. MYCOPHENOLATE MOFETIL (CELLCEPT) [Suspect]
     Indication: IMMUNOSUPPRESSION
  2. PREDNISONE TAB [Concomitant]
     Indication: IMMUNOSUPPRESSION

REACTIONS (3)
  - SEPTIC SHOCK [None]
  - INFECTION [None]
  - MULTI-ORGAN FAILURE [None]
